FAERS Safety Report 7489180-1 (Version None)
Quarter: 2011Q2

REPORT INFORMATION
  Report Type: 
  Country: None (occurrence: None)
  Receive Date: 20110518
  Receipt Date: 20110513
  Transmission Date: 20111010
  Serious: Yes (Hospitalization)
  Sender: FDA-Public Use
  Company Number: KR-CEPHALON-2011001937

PATIENT
  Sex: Male
  Weight: 47 kg

DRUGS (9)
  1. TREANDA [Suspect]
     Indication: ACUTE LEUKAEMIA
     Route: 042
     Dates: start: 20110214, end: 20110321
  2. CHLORPHENIRAMINE MALEATE [Concomitant]
     Dates: start: 20100109
  3. TOPIRAMATE [Concomitant]
     Dates: start: 20100905
  4. ALLOPURINOL [Concomitant]
     Dates: start: 20110413, end: 20110416
  5. ALLOPURINOL [Concomitant]
     Dates: start: 20110210, end: 20110216
  6. COTRIM [Concomitant]
     Dates: start: 20091106
  7. SODIUM BICARBONATE [Concomitant]
     Dates: start: 20110105
  8. FLUCONAZOLE [Concomitant]
     Dates: start: 20110103
  9. LEVETIRACETAM [Concomitant]
     Dates: start: 20091113, end: 20110327

REACTIONS (1)
  - ASPERGILLOSIS [None]
